FAERS Safety Report 14240247 (Version 1)
Quarter: 2017Q4

REPORT INFORMATION
  Report Type: Spontaneous
  Country: US (occurrence: US)
  Receive Date: 20171129
  Receipt Date: 20171129
  Transmission Date: 20180321
  Serious: No
  Sender: FDA-Public Use
  Company Number: None

PATIENT
  Age: 46 Year
  Sex: Female
  Weight: 81 kg

DRUGS (2)
  1. CREST PRO-HEALTH RINSE [Suspect]
     Active Substance: CETYLPYRIDINIUM CHLORIDE
     Indication: GINGIVITIS
     Dosage: TWICE A DAY, RINSE
     Dates: start: 20171114, end: 20171122
  2. VIIVIOPTAL MULTIVITAMIN ESTER-C [Concomitant]

REACTIONS (4)
  - Pain [None]
  - Swollen tongue [None]
  - Decreased appetite [None]
  - Tongue disorder [None]

NARRATIVE: CASE EVENT DATE: 20171122
